FAERS Safety Report 19208900 (Version 1)
Quarter: 2021Q2

REPORT INFORMATION
  Report Type: Spontaneous
  Country: US (occurrence: US)
  Receive Date: 20210503
  Receipt Date: 20210503
  Transmission Date: 20210717
  Serious: Yes (Hospitalization)
  Sender: FDA-Public Use
  Company Number: US-DSJP-DSU-2021-113317

PATIENT
  Age: 45 Year
  Sex: Male

DRUGS (1)
  1. ENHERTU [Suspect]
     Active Substance: FAM-TRASTUZUMAB DERUXTECAN-NXKI
     Indication: GASTRIC CANCER
     Dosage: 6.4 MG/KG
     Route: 042

REACTIONS (4)
  - Nausea [Unknown]
  - Blood electrolytes decreased [Unknown]
  - Diarrhoea [Unknown]
  - Vomiting [Unknown]
